FAERS Safety Report 10041669 (Version 1)
Quarter: 2014Q1

REPORT INFORMATION
  Report Type: Spontaneous
  Country: US (occurrence: US)
  Receive Date: 20140327
  Receipt Date: 20140327
  Transmission Date: 20141002
  Serious: Yes (Other)
  Sender: FDA-Public Use
  Company Number: PHHY2014US032321

PATIENT
  Age: 73 Year
  Sex: Female

DRUGS (3)
  1. HYDRALAZINE [Suspect]
     Indication: HYPERTENSION
     Dosage: 50 MG, TID
  2. CARVEDILOL [Concomitant]
     Indication: HYPERTENSION
     Dosage: 6.25 MG, QID
  3. LEVOTHYROXINE SODIUM [Concomitant]
     Indication: HYPOTHYROIDISM
     Dosage: 50 UG, QD

REACTIONS (3)
  - Glomerulonephritis [Unknown]
  - Blood creatinine increased [Unknown]
  - Renal failure acute [Unknown]
